FAERS Safety Report 9386193 (Version 2)
Quarter: 2013Q3

REPORT INFORMATION
  Report Type: Report from Study
  Country: GB (occurrence: GB)
  Receive Date: 20130708
  Receipt Date: 20130722
  Transmission Date: 20140515
  Serious: Yes (Death)
  Sender: FDA-Public Use
  Company Number: GB-ROCHE-1244072

PATIENT
  Age: 48 Year
  Sex: Male
  Weight: 99 kg

DRUGS (5)
  1. BEVACIZUMAB [Suspect]
     Indication: GASTROOESOPHAGEAL CANCER
     Dosage: 750 MG DATE OF MOST RECENT ADMINISTRATION 19/JUN/2013
     Route: 042
     Dates: start: 20130503
  2. CAPECITABINE [Suspect]
     Indication: GASTROOESOPHAGEAL CANCER
     Dosage: 2500 MG DATE OF MOST RECENT ADMINISTRATION 22/JUN/2013
     Route: 048
     Dates: start: 20130503
  3. EPIRUBICIN [Suspect]
     Indication: GASTROOESOPHAGEAL CANCER
     Dosage: 80 MG DATE OF MOST RECENT ADMINISTRATION 19/JUN/2013
     Route: 042
     Dates: start: 20130503
  4. CISPLATIN [Suspect]
     Indication: GASTROOESOPHAGEAL CANCER
     Dosage: 130 MG DATE OF MOST RECENT ADMINISTRATION 19/JUN/2013
     Route: 042
     Dates: start: 20130503
  5. LANSOPRAZOLE [Concomitant]
     Route: 048
     Dates: start: 20130422

REACTIONS (2)
  - Myocardial infarction [Fatal]
  - Cardiac arrest [Fatal]
